FAERS Safety Report 21332577 (Version 1)
Quarter: 2022Q3

REPORT INFORMATION
  Report Type: Spontaneous
  Country: US (occurrence: US)
  Receive Date: 20220914
  Receipt Date: 20220914
  Transmission Date: 20221026
  Serious: No
  Sender: FDA-Public Use
  Company Number: US-GALDERMA-US2022011062

PATIENT

DRUGS (4)
  1. DIFFERIN GEL [Suspect]
     Active Substance: ADAPALENE
     Indication: Acne
     Dosage: 1 DOSAGE FORM, QWK, ONCE A WEEK
     Route: 061
     Dates: start: 2021, end: 2021
  2. DIFFERIN GEL [Suspect]
     Active Substance: ADAPALENE
     Dosage: 1 DOSAGE FORM, BIW, TWICE A WEEK
     Route: 061
     Dates: start: 2021, end: 2021
  3. DIFFERIN GEL [Suspect]
     Active Substance: ADAPALENE
     Dosage: 1 DOSAGE FORM, TIW, THREE TIMES A WEEK
     Route: 061
     Dates: start: 2021, end: 202108
  4. COSMETICS [Suspect]
     Active Substance: COSMETICS
     Indication: Product used for unknown indication
     Dosage: 1 DOSAGE FORM
     Route: 061

REACTIONS (9)
  - Acne [Recovered/Resolved]
  - Erythema [Recovered/Resolved]
  - Acne cystic [Recovered/Resolved]
  - Skin hypopigmentation [Unknown]
  - Hypersensitivity [Unknown]
  - Skin irritation [Unknown]
  - Skin texture abnormal [Unknown]
  - Inappropriate schedule of product administration [Recovered/Resolved]
  - Underdose [Recovered/Resolved]

NARRATIVE: CASE EVENT DATE: 20210101
